FAERS Safety Report 20385471 (Version 1)
Quarter: 2022Q1

REPORT INFORMATION
  Report Type: Spontaneous
  Country: AU (occurrence: AU)
  Receive Date: 20220127
  Receipt Date: 20220127
  Transmission Date: 20220423
  Serious: Yes (Hospitalization, Other)
  Sender: FDA-Public Use
  Company Number: AU-VERTEX PHARMACEUTICALS-2022-001261

PATIENT
  Age: 32 Year
  Sex: Female

DRUGS (25)
  1. KALYDECO [Suspect]
     Active Substance: IVACAFTOR
     Indication: Cystic fibrosis
     Dosage: 150 MG, BID
     Route: 048
  2. AZITHROMYCIN [Concomitant]
     Active Substance: AZITHROMYCIN
     Dosage: 500MG MONDAY, WEDNESDAY, AND FRIDAY (DECREASED TO 500MG SECOND DAILY)
  3. CREON [Concomitant]
     Active Substance: PANCRELIPASE AMYLASE\PANCRELIPASE LIPASE\PANCRELIPASE PROTEASE
     Dosage: 25,000 UNITS 4 DAILY
  4. VITAMIN D NOS [Concomitant]
     Active Substance: VITAMIN D NOS
     Dosage: 1000 INTERNATIONAL UNIT, QD
  5. LEVEMIR [Concomitant]
     Active Substance: INSULIN DETEMIR
     Dosage: 4-6 UNITS MANE, 3 UNITS NOCTE
  6. NOVORAPID [Concomitant]
     Active Substance: INSULIN ASPART
     Dosage: WITH MEALS
  7. MOTILIUM [Concomitant]
     Active Substance: DOMPERIDONE
     Dosage: 10MG TDS/PRN
  8. SPIRIVA [Concomitant]
     Active Substance: TIOTROPIUM BROMIDE MONOHYDRATE
     Dosage: 2 PUFFS OD
  9. SYMBICORT [Concomitant]
     Active Substance: BUDESONIDE\FORMOTEROL FUMARATE DIHYDRATE
     Dosage: 100/3 2 BD/PRN
  10. CICLESONIDE [Concomitant]
     Active Substance: CICLESONIDE
     Dosage: 160MCG 2 PUFFS OD
  11. PULMOZYME [Concomitant]
     Active Substance: DORNASE ALFA
     Dosage: 2.5MG DAILY
  12. PERINDOPRIL [Concomitant]
     Active Substance: PERINDOPRIL
     Dosage: 10 MG, DAILY
  13. METOPROLOL [Concomitant]
     Active Substance: METOPROLOL
     Dosage: 50 MG, BID
  14. DARBEPOETIN ALFA [Concomitant]
     Active Substance: DARBEPOETIN ALFA
     Dosage: 40MCG FORTNIGHTLY
  15. CALCIUM CARBONATE [Concomitant]
     Active Substance: CALCIUM CARBONATE
     Dosage: 600 MG, TID
  16. CALCIUM RESONIUM [Concomitant]
     Dosage: 15 GRAM, QD
  17. AMITRIPTYLINE [Concomitant]
     Active Substance: AMITRIPTYLINE
     Dosage: 50MG NOCTE
  18. CALCIUM LACTATE\DEXTROSE\POTASSIUM CHLORIDE\SODIUM BICARBONATE\SODIUM [Concomitant]
     Active Substance: CALCIUM LACTATE\DEXTROSE\POTASSIUM CHLORIDE\SODIUM BICARBONATE\SODIUM CHLORIDE
     Dosage: 1 NOCTE
  19. MAGNESIUM ASPARTATE [Concomitant]
     Active Substance: MAGNESIUM ASPARTATE
     Dosage: 1000 MG NOCTE
  20. MONTELUKAST [Concomitant]
     Active Substance: MONTELUKAST SODIUM
     Dosage: 10 MG, QD
  21. PANTOPRAZOLE [Concomitant]
     Active Substance: PANTOPRAZOLE
     Dosage: 40 MG, QD
  22. SODIBIC [Concomitant]
     Dosage: 840 MG, QD
  23. ZINC SULFATE MONOHYDRATE [Concomitant]
     Active Substance: ZINC SULFATE MONOHYDRATE
     Dosage: 1 OD
  24. URSODIOL [Concomitant]
     Active Substance: URSODIOL
     Dosage: 250 MG, BID
  25. METHYLDOPA [Concomitant]
     Active Substance: METHYLDOPA
     Dosage: 250 MG, BID

REACTIONS (3)
  - Infective pulmonary exacerbation of cystic fibrosis [Not Recovered/Not Resolved]
  - Chronic kidney disease [Not Recovered/Not Resolved]
  - Cystic fibrosis hepatic disease [Unknown]

NARRATIVE: CASE EVENT DATE: 20210101
